FAERS Safety Report 25985821 (Version 1)
Quarter: 2025Q4

REPORT INFORMATION
  Report Type: Spontaneous
  Country: EU (occurrence: EU)
  Receive Date: 20251101
  Receipt Date: 20251101
  Transmission Date: 20260118
  Serious: Yes (Hospitalization)
  Sender: TEVA
  Company Number: None

PATIENT
  Age: 43 Year
  Sex: Female

DRUGS (5)
  1. IBUPROFEN [Suspect]
     Active Substance: IBUPROFEN
     Indication: Odynophagia
     Route: 048
     Dates: start: 20250528, end: 20250609
  2. IBUPROFEN [Suspect]
     Active Substance: IBUPROFEN
     Indication: Odynophagia
     Dosage: 1 TABLET EVERY 8 HOURS, ON DEMAND IF NECESSARY
     Route: 048
     Dates: start: 20250712, end: 20250811
  3. IBUPROFEN [Suspect]
     Active Substance: IBUPROFEN
     Indication: Odynophagia
     Route: 048
     Dates: start: 20250202, end: 20250208
  4. METAMIZOLE [Suspect]
     Active Substance: METAMIZOLE
     Indication: Upper respiratory tract infection
     Route: 048
     Dates: start: 20250528, end: 20250602
  5. METAMIZOLE [Suspect]
     Active Substance: METAMIZOLE
     Indication: Upper respiratory tract infection
     Dosage: 1 CAPSULE EVERY 8 HOURS AS NEEDED, IF NECESSARY
     Route: 048
     Dates: start: 20250528, end: 20250811

REACTIONS (2)
  - Acute kidney injury [Recovered/Resolved]
  - Prerenal failure [Recovered/Resolved]

NARRATIVE: CASE EVENT DATE: 20250811
